FAERS Safety Report 8348668-1 (Version None)
Quarter: 2012Q2

REPORT INFORMATION
  Report Type: 
  Country: None (occurrence: None)
  Receive Date: 20120510
  Receipt Date: 20120427
  Transmission Date: 20120825
  Serious: Yes (Other)
  Sender: FDA-Public Use
  Company Number: JP-ELI_LILLY_AND_COMPANY-JP201205000374

PATIENT
  Sex: Female

DRUGS (4)
  1. FORTEO [Suspect]
     Indication: OSTEOPOROSIS
     Dosage: 20 UG, QD
     Route: 058
     Dates: start: 20111020, end: 20111104
  2. BACTAR [Concomitant]
     Dosage: UNK
     Route: 048
     Dates: start: 20111104, end: 20111202
  3. DICLOFENAC SODIUM [Concomitant]
     Indication: PAIN
     Dosage: UNK
     Route: 054
     Dates: start: 20111013, end: 20111020
  4. ELCITONIN [Concomitant]
     Indication: PAIN
     Dosage: UNK
     Route: 030
     Dates: start: 20111013, end: 20111029

REACTIONS (1)
  - HEPATIC FUNCTION ABNORMAL [None]
